FAERS Safety Report 8315409-3 (Version None)
Quarter: 2012Q2

REPORT INFORMATION
  Report Type: 
  Country: None (occurrence: None)
  Receive Date: 20120426
  Receipt Date: 20120419
  Transmission Date: 20120825
  Serious: Yes (Other)
  Sender: FDA-Public Use
  Company Number: GB-ABBOTT-12P-167-0917131-00

PATIENT
  Age: 41 Year
  Sex: Male
  Weight: 81 kg

DRUGS (2)
  1. TESTOSTERONE [Suspect]
     Indication: ANDROGEN DEFICIENCY
     Route: 062
     Dates: start: 20110501
  2. NEBIDO [Suspect]
     Indication: ANDROGEN DEFICIENCY
     Dosage: 1000 MG/4ML
     Route: 050
     Dates: start: 20110101

REACTIONS (8)
  - DYSPNOEA [None]
  - CHEST PAIN [None]
  - DRUG INEFFECTIVE [None]
  - ASTHENIA [None]
  - FIBRIN D DIMER INCREASED [None]
  - CARDIAC FAILURE [None]
  - FATIGUE [None]
  - MUSCULOSKELETAL DISORDER [None]
